FAERS Safety Report 15552223 (Version 3)
Quarter: 2019Q1

REPORT INFORMATION
  Report Type: Report from Study
  Country: US (occurrence: US)
  Receive Date: 20181025
  Receipt Date: 20190201
  Transmission Date: 20190417
  Serious: Yes (Other)
  Sender: FDA-Public Use
  Company Number: US-JNJFOC-20180717814

PATIENT
  Age: 78 Year
  Sex: Female

DRUGS (6)
  1. PRAVASTATIN. [Concomitant]
     Active Substance: PRAVASTATIN
  2. BIOTIN [Concomitant]
     Active Substance: BIOTIN
  3. IMBRUVICA [Suspect]
     Active Substance: IBRUTINIB
     Indication: CHRONIC LYMPHOCYTIC LEUKAEMIA
     Route: 048
     Dates: start: 20180401
  4. CALCIUM [Concomitant]
     Active Substance: CALCIUM
  5. IMBRUVICA [Suspect]
     Active Substance: IBRUTINIB
     Indication: CHRONIC LYMPHOCYTIC LEUKAEMIA
     Route: 048
     Dates: start: 20180611
  6. MULTIVITAMINS [Concomitant]
     Active Substance: VITAMINS

REACTIONS (12)
  - Abdominal discomfort [Not Recovered/Not Resolved]
  - Bladder operation [Unknown]
  - Ovarian cyst [Not Recovered/Not Resolved]
  - Off label use [Unknown]
  - Polyuria [Unknown]
  - Scar [Not Recovered/Not Resolved]
  - Incorrect dose administered [Unknown]
  - Aphthous ulcer [Not Recovered/Not Resolved]
  - Nephrectomy [Unknown]
  - Pain [Unknown]
  - Product packaging issue [Unknown]
  - Platelet count decreased [Recovering/Resolving]

NARRATIVE: CASE EVENT DATE: 20180401
